FAERS Safety Report 5283966-X (Version None)
Quarter: 2007Q2

REPORT INFORMATION
  Report Type: 
  Country: None (occurrence: None)
  Receive Date: 20070402
  Receipt Date: 20070320
  Transmission Date: 20071010
  Serious: Yes (Other)
  Sender: FDA-Public Use
  Company Number: US-PFIZER INC-2006129411

PATIENT
  Sex: Female

DRUGS (3)
  1. CELEBREX [Suspect]
     Indication: ARTHRITIS
     Route: 048
  2. BEXTRA [Suspect]
     Route: 048
  3. VIOXX [Suspect]
     Route: 048

REACTIONS (2)
  - ISCHAEMIC STROKE [None]
  - PARKINSON'S DISEASE [None]
